FAERS Safety Report 9376311 (Version 1)
Quarter: 2013Q2

REPORT INFORMATION
  Report Type: Spontaneous
  Country: US (occurrence: None)
  Receive Date: 20130628
  Receipt Date: 20130628
  Transmission Date: 20140414
  Serious: No
  Sender: FDA-Public Use
  Company Number: None

PATIENT
  Age: 63 Year
  Sex: Female
  Weight: 80.74 kg

DRUGS (2)
  1. BENZONATATE [Suspect]
     Indication: COUGH
     Dosage: 1 PILL 3 X DAILY PO
     Route: 048
     Dates: start: 20130619, end: 20130620
  2. BENZONATATE [Suspect]
     Indication: COUGH
     Dosage: 1 PILL 3 X DAILY PO
     Route: 048
     Dates: start: 20130619, end: 20130620

REACTIONS (7)
  - Headache [None]
  - Nausea [None]
  - Facial pain [None]
  - Pain in jaw [None]
  - Toothache [None]
  - Sneezing [None]
  - Hypersensitivity [None]
